FAERS Safety Report 9594470 (Version 1)
Quarter: 2013Q4

REPORT INFORMATION
  Report Type: Spontaneous
  Country: US (occurrence: US)
  Receive Date: 20131004
  Receipt Date: 20131004
  Transmission Date: 20140711
  Serious: No
  Sender: FDA-Public Use
  Company Number: US-PURDUE-USA-2012-0092219

PATIENT
  Age: 88 Year
  Sex: Male

DRUGS (1)
  1. BUTRANS [Suspect]
     Indication: NEUROPATHY PERIPHERAL
     Dosage: 20 MCG/HR, UNK
     Route: 062
     Dates: start: 20120604, end: 20120803

REACTIONS (4)
  - Drug ineffective [Unknown]
  - Dizziness [Unknown]
  - Fall [Unknown]
  - Somnolence [Unknown]
